FAERS Safety Report 7803521-4 (Version None)
Quarter: 2011Q4

REPORT INFORMATION
  Report Type: 
  Country: None (occurrence: None)
  Receive Date: 20111008
  Receipt Date: 20110929
  Transmission Date: 20120403
  Serious: Yes (Hospitalization)
  Sender: FDA-Public Use
  Company Number: AU-ASTRAZENECA-2011SE52921

PATIENT
  Age: 35 Year
  Sex: Male

DRUGS (5)
  1. VOLTAREN [Concomitant]
     Dosage: 50 MG TABLET TWO OR THREE TIMES A DAY TAKEN WITH FOOD
     Route: 048
     Dates: start: 20091202
  2. SYMBICORT [Concomitant]
     Dosage: 200/6 MCG, 1 PUFF TWO TIMES A DAY
     Route: 055
     Dates: start: 20100222
  3. ATACAND [Suspect]
     Indication: HYPERTENSION
     Route: 048
     Dates: start: 20070101
  4. SYMBICORT [Concomitant]
     Dosage: 200/6 MCG AS NEEDED
     Route: 055
     Dates: start: 20100222
  5. VOLTAREN [Concomitant]
     Dosage: 50 MG TABLET TWO OR THREE TIMES A DAY TAKEN WITH FOOD
     Route: 048
     Dates: start: 20091105

REACTIONS (6)
  - ARTHROPATHY [None]
  - JOINT INJURY [None]
  - LIGAMENT RUPTURE [None]
  - TENDON DISORDER [None]
  - MUSCULAR WEAKNESS [None]
  - MENISCAL DEGENERATION [None]
